FAERS Safety Report 8246032-7 (Version None)
Quarter: 2012Q1

REPORT INFORMATION
  Report Type: 
  Country: None (occurrence: None)
  Receive Date: 20120330
  Receipt Date: 20120322
  Transmission Date: 20120608
  Serious: Yes (Other)
  Sender: FDA-Public Use
  Company Number: DE-JNJFOC-20111103013

PATIENT
  Age: 78 Year
  Sex: Female

DRUGS (4)
  1. DURAGESIC-100 [Suspect]
     Indication: PAIN
     Route: 062
     Dates: start: 20040901, end: 20051001
  2. ENALAPRIL [Suspect]
     Indication: HYPERTENSION
     Route: 048
     Dates: start: 20030101, end: 20080701
  3. DURAGESIC-100 [Suspect]
     Indication: SPINAL OSTEOARTHRITIS
     Route: 062
     Dates: start: 20040901, end: 20051001
  4. DIPYRONE TAB [Suspect]
     Indication: PAIN
     Route: 048
     Dates: start: 20050601, end: 20070501

REACTIONS (1)
  - DEMENTIA [None]
